FAERS Safety Report 12754025 (Version 1)
Quarter: 2016Q3

REPORT INFORMATION
  Report Type: Spontaneous
  Country: US (occurrence: US)
  Receive Date: 20160915
  Receipt Date: 20160915
  Transmission Date: 20161109
  Serious: No
  Sender: FDA-Public Use
  Company Number: US-ALLERGAN-1660693US

PATIENT
  Sex: Male
  Weight: 112.2 kg

DRUGS (1)
  1. VIBERZI [Suspect]
     Active Substance: ELUXADOLINE
     Indication: IRRITABLE BOWEL SYNDROME
     Dosage: 100 MG, BID
     Dates: start: 20160603

REACTIONS (3)
  - Alcohol interaction [Unknown]
  - Fatigue [Unknown]
  - Headache [Unknown]
